FAERS Safety Report 12479616 (Version 1)
Quarter: 2016Q2

REPORT INFORMATION
  Report Type: Spontaneous
  Country: US (occurrence: US)
  Receive Date: 20160620
  Receipt Date: 20160620
  Transmission Date: 20160815
  Serious: No
  Sender: FDA-Public Use
  Company Number: US-PFIZER INC-2016306262

PATIENT
  Age: 55 Year
  Sex: Female
  Weight: 67.12 kg

DRUGS (1)
  1. GEMFIBROZIL. [Suspect]
     Active Substance: GEMFIBROZIL
     Indication: BLOOD CHOLESTEROL ABNORMAL
     Dosage: UNK
     Dates: end: 20160506

REACTIONS (3)
  - Nausea [Recovered/Resolved]
  - Eating disorder [Recovered/Resolved]
  - Parosmia [Recovered/Resolved]
